FAERS Safety Report 5146164-6 (Version None)
Quarter: 2006Q4

REPORT INFORMATION
  Report Type: 
  Country: None (occurrence: None)
  Receive Date: 20061106
  Receipt Date: 20061106
  Transmission Date: 20070319
  Serious: Yes (Hospitalization, Disabling)
  Sender: FDA-Public Use
  Company Number: None

PATIENT
  Age: 50 Year
  Sex: Female
  Weight: 61.2356 kg

DRUGS (4)
  1. EFFEXOR [Suspect]
     Indication: DEPRESSION
     Dosage: 300 MGS DAILY    150 MGS 2X DAILY   PO
     Route: 048
     Dates: start: 20051115, end: 20060728
  2. EFFEXOR [Suspect]
     Indication: DEPRESSION
     Dosage: 300 MGS DAILY    150 MGS 2X DAILY   PO
     Route: 048
     Dates: start: 20060801, end: 20061101
  3. ADVIL [Concomitant]
  4. ALLEGRA [Concomitant]

REACTIONS (10)
  - ASTHENIA [None]
  - DIARRHOEA [None]
  - DRUG DEPENDENCE [None]
  - DRUG WITHDRAWAL SYNDROME [None]
  - HEADACHE [None]
  - PARAESTHESIA [None]
  - RETINAL DETACHMENT [None]
  - RETINAL TEAR [None]
  - VERTIGO [None]
  - VOMITING [None]
